FAERS Safety Report 16342944 (Version 1)
Quarter: 2019Q2

REPORT INFORMATION
  Report Type: Spontaneous
  Country: CA (occurrence: CA)
  Receive Date: 20190522
  Receipt Date: 20190522
  Transmission Date: 20190711
  Serious: Yes (Death)
  Sender: FDA-Public Use
  Company Number: CA-TEVA-2019-CA-1051698

PATIENT
  Age: 74 Year
  Sex: Female
  Weight: 79 kg

DRUGS (12)
  1. SILDENAFIL CITRATE. [Suspect]
     Active Substance: SILDENAFIL CITRATE
     Indication: PULMONARY ARTERIAL HYPERTENSION
     Dosage: 60 MILLIGRAM DAILY;
     Route: 048
  2. SLOW K [Concomitant]
     Active Substance: POTASSIUM CHLORIDE
     Dosage: TABLET (EXTENDED RELEASE)
  3. PREVACID [Concomitant]
     Active Substance: LANSOPRAZOLE
     Indication: GASTROOESOPHAGEAL REFLUX DISEASE
  4. OXYGEN. [Concomitant]
     Active Substance: OXYGEN
  5. ASA [Concomitant]
     Active Substance: ASPIRIN
     Indication: ARTERIOSCLEROSIS
  6. MIDODRINE [Concomitant]
     Active Substance: MIDODRINE
  7. CYANOCOBALAMIN. [Concomitant]
     Active Substance: CYANOCOBALAMIN
  8. CIPRALEX [Concomitant]
     Active Substance: ESCITALOPRAM OXALATE
  9. CALCIUM GLUCONATE. [Concomitant]
     Active Substance: CALCIUM GLUCONATE
  10. OPSUMIT [Suspect]
     Active Substance: MACITENTAN
     Indication: PULMONARY ARTERIAL HYPERTENSION
     Dosage: 10 MILLIGRAM DAILY;
     Route: 048
  11. LASIX [Concomitant]
     Active Substance: FUROSEMIDE
     Indication: FLUID RETENTION
  12. ERGOCALCIFEROL. [Concomitant]
     Active Substance: ERGOCALCIFEROL

REACTIONS (16)
  - Blood pressure decreased [Fatal]
  - Decreased appetite [Fatal]
  - Disease progression [Fatal]
  - Dyspnoea [Fatal]
  - Hypotension [Fatal]
  - Right ventricular failure [Fatal]
  - Orthopnoea [Fatal]
  - Scleroderma [Fatal]
  - Syncope [Fatal]
  - Weight decreased [Fatal]
  - Blood creatinine increased [Fatal]
  - Oedema peripheral [Fatal]
  - Cardiovascular insufficiency [Fatal]
  - Fluid retention [Fatal]
  - Cough [Fatal]
  - Fluid overload [Fatal]
